FAERS Safety Report 8146708-6 (Version None)
Quarter: 2012Q1

REPORT INFORMATION
  Report Type: 
  Country: None (occurrence: None)
  Receive Date: 20120217
  Receipt Date: 20110609
  Transmission Date: 20120608
  Serious: No
  Sender: FDA-Public Use
  Company Number: US-ABBOTT-11P-163-0731355-00

PATIENT
  Sex: Male
  Weight: 86.26 kg

DRUGS (4)
  1. I PROMISE [Concomitant]
     Indication: PRODUCT USED FOR UNKNOWN INDICATION
  2. ATACAND [Concomitant]
     Indication: PRODUCT USED FOR UNKNOWN INDICATION
  3. SIMCOR [Suspect]
     Indication: BLOOD CHOLESTEROL INCREASED
     Dosage: 500/20MG
     Dates: start: 20100901
  4. SIMCOR [Suspect]
     Indication: ARTERIOSCLEROSIS

REACTIONS (5)
  - ERYTHEMA [None]
  - PRURITUS GENERALISED [None]
  - LIP SWELLING [None]
  - FLUSHING [None]
  - FACE OEDEMA [None]
